FAERS Safety Report 4486552-4 (Version None)
Quarter: 2004Q4

REPORT INFORMATION
  Report Type: 
  Country: None (occurrence: None)
  Receive Date: 20041021
  Receipt Date: 20041008
  Transmission Date: 20050328
  Serious: Yes (Other)
  Sender: FDA-Public Use
  Company Number: 2004237887FR

PATIENT
  Age: 63 Year
  Sex: Male

DRUGS (6)
  1. ARTHROTEC [Suspect]
     Indication: LOCALISED OSTEOARTHRITIS
     Dosage: 50 MG, ORAL
     Route: 048
  2. ALLOPURINOL [Concomitant]
  3. BRUFEN [Concomitant]
  4. NAPROSYN [Concomitant]
  5. ACETYLSALICYLIC ACID [Concomitant]
  6. DILTIAZEM HCL [Concomitant]

REACTIONS (5)
  - CHILLS [None]
  - FATIGUE [None]
  - HALLUCINATION [None]
  - HYPERHIDROSIS [None]
  - PYREXIA [None]
